FAERS Safety Report 8187312-3 (Version None)
Quarter: 2012Q1

REPORT INFORMATION
  Report Type: 
  Country: None (occurrence: None)
  Receive Date: 20120302
  Receipt Date: 20120222
  Transmission Date: 20120608
  Serious: Yes (Other)
  Sender: FDA-Public Use
  Company Number: 2012SP005687

PATIENT
  Age: 34 Year
  Sex: Female
  Weight: 86 kg

DRUGS (5)
  1. CEPHALEXIN [Concomitant]
  2. LANSOPRAZOLE [Concomitant]
  3. IMPLANON [Suspect]
     Indication: CONTRACEPTION
     Dosage: SC
     Route: 058
     Dates: start: 20090429, end: 20120118
  4. PENICILLIN V [Concomitant]
  5. NAPROXEN [Concomitant]

REACTIONS (3)
  - DEVICE KINK [None]
  - DEVICE BREAKAGE [None]
  - COMPLICATION OF DEVICE REMOVAL [None]
